FAERS Safety Report 10626229 (Version 1)
Quarter: 2014Q4

REPORT INFORMATION
  Report Type: Spontaneous
  Country: GB (occurrence: GB)
  Receive Date: 20141204
  Receipt Date: 20141204
  Transmission Date: 20150529
  Serious: Yes (Other)
  Sender: FDA-Public Use
  Company Number: GB-WATSON-2014-25938

PATIENT
  Age: 45 Year
  Sex: Male
  Weight: 105 kg

DRUGS (2)
  1. OMEPRAZOLE (UNKNOWN) [Suspect]
     Active Substance: OMEPRAZOLE
     Indication: HIATUS HERNIA
     Dosage: 20 MG, UNKNOWN
     Route: 048
     Dates: start: 20140401
  2. CYANOCOBALAMIN. [Interacting]
     Active Substance: CYANOCOBALAMIN
     Indication: VITAMIN B12 DEFICIENCY
     Dosage: UNK
     Route: 065

REACTIONS (1)
  - Inhibitory drug interaction [Not Recovered/Not Resolved]

NARRATIVE: CASE EVENT DATE: 20140401
